FAERS Safety Report 9684360 (Version 1)
Quarter: 2013Q4

REPORT INFORMATION
  Report Type: Spontaneous
  Country: HU (occurrence: HU)
  Receive Date: 20131112
  Receipt Date: 20131112
  Transmission Date: 20140711
  Serious: Yes (Hospitalization)
  Sender: FDA-Public Use
  Company Number: HU-UCBSA-102760

PATIENT
  Age: 53 Year
  Sex: Female

DRUGS (2)
  1. CIMZIA [Suspect]
     Indication: RHEUMATOID ARTHRITIS
     Route: 058
     Dates: start: 201205, end: 20120813
  2. SANDIMMUN NEORAL [Concomitant]
     Route: 048
     Dates: start: 1996

REACTIONS (1)
  - Myopathy [Not Recovered/Not Resolved]
